FAERS Safety Report 7780964-9 (Version None)
Quarter: 2011Q3

REPORT INFORMATION
  Report Type: 
  Country: None (occurrence: None)
  Receive Date: 20110927
  Receipt Date: 20110920
  Transmission Date: 20111222
  Serious: Yes (Hospitalization)
  Sender: FDA-Public Use
  Company Number: FR-B.I. PHARMACEUTICALS,INC./RIDGEFIELD-2011-FF-00866FF

PATIENT
  Age: 79 Year
  Sex: Male

DRUGS (2)
  1. PRADAXA [Suspect]
     Indication: ARRHYTHMIA
     Dosage: 220 MG
     Route: 048
     Dates: start: 20110801
  2. ASPIRIN [Suspect]
     Indication: ARRHYTHMIA

REACTIONS (1)
  - TRANSIENT ISCHAEMIC ATTACK [None]
